FAERS Safety Report 10041030 (Version 2)
Quarter: 2014Q2

REPORT INFORMATION
  Report Type: Spontaneous
  Country: FR (occurrence: FR)
  Receive Date: 20140327
  Receipt Date: 20140423
  Transmission Date: 20141212
  Serious: Yes (Hospitalization)
  Sender: FDA-Public Use
  Company Number: FR-PFIZER INC-2014082874

PATIENT
  Age: 82 Year
  Sex: Female

DRUGS (7)
  1. LYRICA [Suspect]
     Dosage: 25 MG, DAILY
     Route: 048
     Dates: start: 201312, end: 20140205
  2. KENZEN [Suspect]
     Dosage: UNK
     Dates: end: 20140205
  3. EFFEXOR [Concomitant]
     Route: 048
  4. INEXIUM /01479302/ [Concomitant]
     Dosage: 40 MG, 1X/DAY
     Route: 048
  5. STILNOX [Concomitant]
     Dosage: 0.5 DF, 1X/DAY
     Route: 048
  6. LEVOTHYROX [Concomitant]
     Dosage: 125 UG, 1X/DAY
     Route: 048
  7. TRINITRINE [Concomitant]

REACTIONS (4)
  - Eosinophilia [Recovered/Resolved]
  - Hepatitis cholestatic [Recovered/Resolved]
  - Hepatitis [Recovered/Resolved]
  - Hyperbilirubinaemia [Recovered/Resolved]
